FAERS Safety Report 5451667-0 (Version None)
Quarter: 2007Q3

REPORT INFORMATION
  Report Type: 
  Country: None (occurrence: None)
  Receive Date: 20070913
  Receipt Date: 20070901
  Transmission Date: 20080115
  Serious: Yes (Other)
  Sender: FDA-Public Use
  Company Number: US-PFIZER INC-2007073616

PATIENT
  Sex: Female
  Weight: 51.3 kg

DRUGS (4)
  1. CHANTIX [Suspect]
     Indication: SMOKING CESSATION THERAPY
     Route: 048
  2. SYNTHROID [Concomitant]
     Route: 048
  3. PROVIGIL [Concomitant]
     Route: 048
  4. CYMBALTA [Concomitant]
     Indication: DEPRESSION
     Dosage: DAILY DOSE:60MG
     Route: 048

REACTIONS (6)
  - ABNORMAL BEHAVIOUR [None]
  - ACTIVITIES OF DAILY LIVING IMPAIRED [None]
  - COMMUNICATION DISORDER [None]
  - DYSARTHRIA [None]
  - MENTAL DISORDER [None]
  - MUTISM [None]
